FAERS Safety Report 9188692 (Version 1)
Quarter: 2013Q1

REPORT INFORMATION
  Report Type: Spontaneous
  Country: US (occurrence: US)
  Receive Date: 20130325
  Receipt Date: 20130325
  Transmission Date: 20140127
  Serious: Yes (Other)
  Sender: FDA-Public Use
  Company Number: US-SHIRE-ALL1-2013-01658

PATIENT
  Age: 26 Year
  Sex: Female

DRUGS (2)
  1. VYVANSE [Suspect]
     Indication: PRODUCT USED FOR UNKNOWN INDICATION
     Dosage: 100 MG (TWO 50 MG CAPSULES), UNKNOWN
     Route: 048
  2. ADDERALL XR [Suspect]
     Indication: PRODUCT USED FOR UNKNOWN INDICATION
     Dosage: 40 MG (TWO 20 MG CAPSULES), UNKNOWN
     Route: 048

REACTIONS (4)
  - Suicide attempt [Unknown]
  - Suicidal ideation [Unknown]
  - Overdose [Not Recovered/Not Resolved]
  - Off label use [Unknown]
